FAERS Safety Report 14032133 (Version 1)
Quarter: 2017Q4

REPORT INFORMATION
  Report Type: Spontaneous
  Country: BR (occurrence: BR)
  Receive Date: 20171002
  Receipt Date: 20171002
  Transmission Date: 20180321
  Serious: Yes (Other)
  Sender: FDA-Public Use
  Company Number: BR-PFIZER INC-2017403075

PATIENT
  Age: 42 Year
  Sex: Female

DRUGS (2)
  1. OMEPRAZOL [Concomitant]
     Active Substance: OMEPRAZOLE
     Dosage: IN THE MORNING
     Dates: start: 2017
  2. CELEBRA [Suspect]
     Active Substance: CELECOXIB
     Indication: SPINAL DISORDER
     Dosage: 200 MG, ONCE A DAY
     Dates: start: 20170915, end: 20170923

REACTIONS (5)
  - Hepatic pain [Recovered/Resolved]
  - Back pain [Recovered/Resolved]
  - Hepatomegaly [Recovered/Resolved]
  - Pulmonary pain [Recovered/Resolved]
  - Pain in extremity [Not Recovered/Not Resolved]

NARRATIVE: CASE EVENT DATE: 20170915
